FAERS Safety Report 8828120 (Version 1)
Quarter: 2012Q4

REPORT INFORMATION
  Report Type: 
  Country: FR (occurrence: FR)
  Receive Date: 20121008
  Receipt Date: 20121008
  Transmission Date: 20130627
  Serious: Yes (Other)
  Sender: FDA-Public Use
  Company Number: PHHY2012FR029257

PATIENT
  Age: 63 Year
  Sex: Male
  Weight: 64 kg

DRUGS (7)
  1. EXELON [Suspect]
     Dosage: 4.5 mg, daily
     Route: 048
     Dates: start: 20110620, end: 20110720
  2. EXELON [Suspect]
     Dosage: 1.5 mg, BID
     Route: 048
     Dates: start: 20110720, end: 20111015
  3. EXELON PATCH [Suspect]
     Dosage: 4.6 mg/ 24 hour
     Route: 062
     Dates: start: 20111015, end: 20111115
  4. EXELON PATCH [Suspect]
     Dosage: 9.5 mg/24 hours
     Route: 062
     Dates: start: 20111115, end: 20111205
  5. EXELON PATCH [Suspect]
     Dosage: UNK
     Route: 062
     Dates: start: 20120301, end: 20120330
  6. SIMVASTATIN [Concomitant]
  7. KARDEGIC [Concomitant]

REACTIONS (4)
  - Hepatocellular injury [Recovered/Resolved]
  - Hepatic enzyme increased [Recovered/Resolved]
  - Gastrointestinal disorder [Recovered/Resolved]
  - Weight decreased [Recovered/Resolved]
